FAERS Safety Report 7166851-8 (Version None)
Quarter: 2010Q4

REPORT INFORMATION
  Report Type: 
  Country: None (occurrence: None)
  Receive Date: 20101213
  Receipt Date: 20101213
  Transmission Date: 20110411
  Serious: No
  Sender: FDA-Public Use
  Company Number: None

PATIENT
  Age: 69 Year
  Sex: Male

DRUGS (1)
  1. IOHEXOL UNKNOWN UNKNOWN [Suspect]
     Dosage: 70ML
     Dates: start: 20101106, end: 20101106

REACTIONS (3)
  - BLOOD PRESSURE DECREASED [None]
  - CONTRAST MEDIA REACTION [None]
  - RENAL DISORDER [None]
